FAERS Safety Report 9403233 (Version 2)
Quarter: 2014Q1

REPORT INFORMATION
  Report Type: Spontaneous
  Country: US (occurrence: US)
  Receive Date: 20130712
  Receipt Date: 20140109
  Transmission Date: 20141002
  Serious: Yes (Hospitalization)
  Sender: FDA-Public Use
  Company Number: CIO13038600

PATIENT
  Age: 77 Year
  Sex: Male

DRUGS (2)
  1. METAMUCIL [Suspect]
     Dosage: 1TSP 1D, ORAL
     Route: 048
  2. ALL OTHER THERAPEUTIC PRODUCTS [Concomitant]

REACTIONS (8)
  - Shock [None]
  - Gastrointestinal obstruction [None]
  - Hypotension [None]
  - Vomiting [None]
  - Cold sweat [None]
  - Abdominal pain upper [None]
  - Feeling cold [None]
  - Product physical issue [None]
